FAERS Safety Report 6151710-X (Version None)
Quarter: 2009Q2

REPORT INFORMATION
  Report Type: 
  Country: None (occurrence: None)
  Receive Date: 20090410
  Receipt Date: 20090403
  Transmission Date: 20091009
  Serious: Yes (Death, Hospitalization)
  Sender: FDA-Public Use
  Company Number: A0744344A

PATIENT
  Age: 53 Year
  Sex: Female
  Weight: 105.9 kg

DRUGS (5)
  1. AVANDIA [Suspect]
     Dosage: 8MG PER DAY
     Route: 048
     Dates: start: 19990101, end: 20070601
  2. ALLOPURINOL [Concomitant]
     Dosage: 300MG PER DAY
  3. LIPITOR [Concomitant]
     Dosage: 10MG PER DAY
  4. GLUCOTROL XL [Concomitant]
     Dosage: 10MG PER DAY
  5. ESTROGENIC SUBSTANCE [Concomitant]

REACTIONS (9)
  - CARDIAC FAILURE CONGESTIVE [None]
  - CARDIOMEGALY [None]
  - CHRONIC OBSTRUCTIVE PULMONARY DISEASE [None]
  - CORONARY ARTERY DISEASE [None]
  - DEATH [None]
  - EMPHYSEMA [None]
  - MYOCARDIAL INFARCTION [None]
  - PAIN [None]
  - PLEURAL EFFUSION [None]
